FAERS Safety Report 21138594 (Version 4)
Quarter: 2022Q3

REPORT INFORMATION
  Report Type: Spontaneous
  Country: US (occurrence: US)
  Receive Date: 20220727
  Receipt Date: 20220913
  Transmission Date: 20221027
  Serious: No
  Sender: FDA-Public Use
  Company Number: US-BRISTOL-MYERS SQUIBB COMPANY-2022-080916

PATIENT
  Age: 83 Year
  Sex: Male

DRUGS (2)
  1. POMALYST [Suspect]
     Active Substance: POMALIDOMIDE
     Indication: Plasma cell myeloma
     Dosage: 21 DAYS AND THEN OFF FOR 7 DAYS
     Route: 048
     Dates: start: 20220617
  2. POMALYST [Suspect]
     Active Substance: POMALIDOMIDE
     Dosage: FREQ: MOUTH EVERY DAY FOR 21 DAYS
     Route: 048

REACTIONS (3)
  - Tooth disorder [Unknown]
  - Diarrhoea [Unknown]
  - Dermatitis acneiform [Unknown]
